FAERS Safety Report 5362105-0 (Version None)
Quarter: 2007Q2

REPORT INFORMATION
  Report Type: 
  Country: None (occurrence: None)
  Receive Date: 20070530
  Receipt Date: 20070310
  Transmission Date: 20071010
  Serious: No
  Sender: FDA-Public Use
  Company Number: 2007PV031421

PATIENT
  Age: 52 Year
  Sex: Female

DRUGS (2)
  1. BYETTA [Suspect]
     Indication: THYROID DISORDER
     Dosage: SEE IMAGE
     Route: 058
     Dates: start: 20070201, end: 20070306
  2. BYETTA [Suspect]
     Indication: THYROID DISORDER
     Dosage: SEE IMAGE
     Route: 058
     Dates: start: 20070307

REACTIONS (2)
  - HUNGER [None]
  - WEIGHT DECREASED [None]
